FAERS Safety Report 6248086-6 (Version None)
Quarter: 2009Q2

REPORT INFORMATION
  Report Type: 
  Country: None (occurrence: None)
  Receive Date: 20090629
  Receipt Date: 20071004
  Transmission Date: 20091009
  Serious: Yes (Hospitalization, Other)
  Sender: FDA-Public Use
  Company Number: US-ASTRAZENECA-2006UW21210

PATIENT
  Age: 14495 Day
  Sex: Female
  Weight: 82.6 kg

DRUGS (12)
  1. SEROQUEL [Suspect]
     Indication: SCHIZOPHRENIA
     Route: 048
     Dates: start: 20051025
  2. SEROQUEL [Suspect]
     Indication: ANXIETY
     Route: 048
     Dates: start: 20051025
  3. EFFEXOR [Concomitant]
     Dates: start: 20050412
  4. METOPROLOL SUCCINATE [Concomitant]
     Dates: start: 20050801
  5. LIPITOR [Concomitant]
     Dates: start: 20050412
  6. NORTRIPTYLINE HCL [Concomitant]
     Dates: start: 20050801
  7. PAXIL [Concomitant]
     Dosage: 25 MG EVERY MORNING, 37.5 MG EVERY MORNING
     Dates: start: 20060221
  8. HYDROCHLOROTHIAZIDE [Concomitant]
     Dates: start: 20060221
  9. XANAX [Concomitant]
     Dates: start: 20050412
  10. ASPIRIN [Concomitant]
     Dates: start: 20060221
  11. GLUCOVANCE [Concomitant]
     Dates: start: 20060221
  12. NOVOLOG [Concomitant]
     Dosage: IN SLIDING SCALE
     Dates: start: 20060221

REACTIONS (3)
  - DIABETIC KETOACIDOSIS [None]
  - INSULIN-REQUIRING TYPE 2 DIABETES MELLITUS [None]
  - NEUROPATHY PERIPHERAL [None]
